FAERS Safety Report 4443679-0 (Version None)
Quarter: 2004Q3

REPORT INFORMATION
  Report Type: 
  Country: None (occurrence: None)
  Receive Date: 20040908
  Receipt Date: 20030212
  Transmission Date: 20050211
  Serious: Yes (Other)
  Sender: FDA-Public Use
  Company Number: GB-ROCHE-333709

PATIENT
  Age: 35 Year
  Sex: Female
  Weight: 52 kg

DRUGS (2)
  1. ROACCUTANE [Suspect]
     Indication: ACNE
     Route: 065
     Dates: start: 19990819
  2. ROACCUTANE [Suspect]
     Dosage: THE PATIENT HAD STOPPED TAKING ISOTRETINOIN FOR A FEW DAYS.
     Route: 065
     Dates: end: 19991105

REACTIONS (7)
  - DISCOMFORT [None]
  - HYPERTHYROIDISM [None]
  - NAUSEA [None]
  - PRURITUS [None]
  - SKIN DESQUAMATION [None]
  - TREMOR [None]
  - WEIGHT DECREASED [None]
